FAERS Safety Report 19134121 (Version 11)
Quarter: 2021Q4

REPORT INFORMATION
  Report Type: Report from Study
  Country: US (occurrence: US)
  Receive Date: 20210414
  Receipt Date: 20211027
  Transmission Date: 20220303
  Serious: Yes (Other)
  Sender: FDA-Public Use
  Company Number: US-PFIZER INC-2021376314

PATIENT
  Age: 87 Year
  Sex: Female

DRUGS (8)
  1. IBRANCE [Suspect]
     Active Substance: PALBOCICLIB
     Indication: Breast cancer female
     Dosage: 75 MG, CYCLIC (DAILY FOR 21 DAYS ON AND 7 DAYS OFF)
     Route: 048
     Dates: start: 20210326, end: 20210330
  2. IBRANCE [Suspect]
     Active Substance: PALBOCICLIB
     Dosage: 75 MG, CYCLIC (ONCE DAILY, 21 DAYS ON AND 7 DAYS OFF)
     Route: 048
     Dates: start: 20210408, end: 20210413
  3. IBRANCE [Suspect]
     Active Substance: PALBOCICLIB
     Dosage: 75 MG, CYCLIC (EVERY OTHER DAY FOR 1 WEEK ON, 1 WEEK OFF)
     Route: 048
     Dates: start: 20210414
  4. IBRANCE [Suspect]
     Active Substance: PALBOCICLIB
     Dosage: 75 MG, DAILY CONTINUOSLY
     Route: 048
     Dates: start: 20210414
  5. IBRANCE [Suspect]
     Active Substance: PALBOCICLIB
     Dosage: 75 MG, ALTERNATE DAY
     Route: 048
     Dates: start: 20210326
  6. IBRANCE [Suspect]
     Active Substance: PALBOCICLIB
     Dosage: 75 MG, CYCLIC (75 MG DAILY FOR 21 DAYS AND OFF FOR 7 DAYS)
     Route: 048
     Dates: start: 20210510, end: 20210915
  7. IBRANCE [Suspect]
     Active Substance: PALBOCICLIB
     Dosage: 75 MG, CYCLIC (DAILY FOR 21 DAYS ON AND 7 DAYS OFF)
     Route: 048
     Dates: start: 20211015
  8. ANASTROZOLE [Concomitant]
     Active Substance: ANASTROZOLE
     Dosage: UNK, DAILY

REACTIONS (23)
  - Neuropathy peripheral [Unknown]
  - Condition aggravated [Unknown]
  - Wrist fracture [Unknown]
  - White blood cell count decreased [Unknown]
  - Stomatitis [Unknown]
  - Fatigue [Not Recovered/Not Resolved]
  - Oral fungal infection [Not Recovered/Not Resolved]
  - Insomnia [Unknown]
  - Productive cough [Not Recovered/Not Resolved]
  - Chest discomfort [Recovered/Resolved]
  - Nausea [Recovering/Resolving]
  - Musculoskeletal stiffness [Unknown]
  - Condition aggravated [Unknown]
  - Dizziness [Unknown]
  - Feeling abnormal [Unknown]
  - Condition aggravated [Unknown]
  - Dyspnoea [Unknown]
  - Condition aggravated [Unknown]
  - Throat irritation [Unknown]
  - Fall [Unknown]
  - Off label use [Unknown]
  - Product dose omission issue [Unknown]
  - Abdominal discomfort [Recovering/Resolving]

NARRATIVE: CASE EVENT DATE: 20210101
